FAERS Safety Report 9677170 (Version 2)
Quarter: 2013Q4

REPORT INFORMATION
  Report Type: Spontaneous
  Country: FR (occurrence: FR)
  Receive Date: 20131108
  Receipt Date: 20131220
  Transmission Date: 20140711
  Serious: Yes (Hospitalization)
  Sender: FDA-Public Use
  Company Number: FR-BRISTOL-MYERS SQUIBB COMPANY-19754977

PATIENT
  Age: 77 Year
  Sex: Male

DRUGS (6)
  1. COUMADIN TABS [Suspect]
     Indication: ATRIAL FIBRILLATION
     Dosage: INTER ON UNK DATE?AGAIN 16SEP13-26SEP13
     Route: 048
     Dates: start: 2002
  2. COUMADIN TABS [Suspect]
     Indication: CEREBROVASCULAR ACCIDENT
     Dosage: INTER ON UNK DATE?AGAIN 16SEP13-26SEP13
     Route: 048
     Dates: start: 2002
  3. INNOHEP [Suspect]
     Dosage: LAST DOSE:16SEP13
     Route: 058
     Dates: start: 201307
  4. NEURONTIN [Concomitant]
  5. DOLIPRANE [Concomitant]
  6. TOPALGIC [Concomitant]

REACTIONS (4)
  - Sepsis [Recovered/Resolved]
  - Haematoma [Recovered/Resolved]
  - Anaemia [Recovered/Resolved]
  - Pain [Recovered/Resolved]
